FAERS Safety Report 9296202 (Version 2)
Quarter: 2013Q2

REPORT INFORMATION
  Report Type: Spontaneous
  Country: US (occurrence: US)
  Receive Date: 20130517
  Receipt Date: 20130529
  Transmission Date: 20140414
  Serious: No
  Sender: FDA-Public Use
  Company Number: US-009507513-1305USA003498

PATIENT
  Sex: Female
  Weight: 54.42 kg

DRUGS (8)
  1. MIRALAX [Suspect]
     Indication: PRODUCT USED FOR UNKNOWN INDICATION
     Dosage: 17 G, QPM
     Route: 048
     Dates: start: 2010, end: 20130426
  2. MIRALAX [Suspect]
     Indication: MEDICAL OBSERVATION
     Dosage: UNK
     Route: 048
  3. NEXIUM [Concomitant]
     Indication: DYSPEPSIA
     Dosage: UNK, UNKNOWN
  4. VITAMIN B (UNSPECIFIED) [Concomitant]
     Indication: PERNICIOUS ANAEMIA
     Dosage: UNK, UNKNOWN
  5. NEURONTIN [Concomitant]
     Indication: NEURALGIA
     Dosage: UNK, UNKNOWN
  6. TRAZODONE HYDROCHLORIDE [Concomitant]
     Indication: SLEEP DISORDER
     Dosage: UNK, UNKNOWN
  7. CEPHALEXIN [Concomitant]
     Indication: PROPHYLAXIS URINARY TRACT INFECTION
     Dosage: UNK, UNKNOWN
  8. CONCERTA [Concomitant]
     Indication: ATTENTION DEFICIT/HYPERACTIVITY DISORDER
     Dosage: UNK, UNKNOWN

REACTIONS (3)
  - Drug ineffective [Unknown]
  - Product quality issue [Unknown]
  - Abdominal pain [Recovered/Resolved]
